FAERS Safety Report 9017261 (Version 4)
Quarter: 2013Q4

REPORT INFORMATION
  Report Type: Spontaneous
  Country: US (occurrence: US)
  Receive Date: 20130117
  Receipt Date: 20131029
  Transmission Date: 20140711
  Serious: Yes (Hospitalization, Other)
  Sender: FDA-Public Use
  Company Number: US-009507513-1301USA007533

PATIENT
  Sex: Female
  Weight: 81.63 kg

DRUGS (5)
  1. NUVARING [Suspect]
     Indication: CONTRACEPTION
     Dosage: UNK
     Route: 067
     Dates: start: 200409, end: 20110117
  2. NUVARING [Suspect]
     Indication: MENORRHAGIA
  3. SYNTHROID [Concomitant]
     Indication: HYPOTHYROIDISM
     Dosage: UNK
     Route: 048
     Dates: start: 1992
  4. ZOLOFT [Concomitant]
     Indication: DEPRESSION
     Route: 048
  5. CHILDREN^S CHEWABLE VITAMINS (UNSPECIFIED) [Suspect]
     Indication: ROUTINE HEALTH MAINTENANCE

REACTIONS (36)
  - Arthroscopy [Unknown]
  - Pulmonary embolism [Not Recovered/Not Resolved]
  - Deep vein thrombosis [Recovered/Resolved]
  - Autoimmune thyroiditis [Not Recovered/Not Resolved]
  - Arthropathy [Unknown]
  - Haemorrhage [Not Recovered/Not Resolved]
  - Nerve compression [Not Recovered/Not Resolved]
  - Nerve compression [Not Recovered/Not Resolved]
  - Polycystic ovaries [Not Recovered/Not Resolved]
  - Hypertension [Unknown]
  - Adjustment disorder [Unknown]
  - Back pain [Not Recovered/Not Resolved]
  - Female sterilisation [Unknown]
  - Arthralgia [Unknown]
  - Intervertebral disc protrusion [Unknown]
  - Hyperlipidaemia [Unknown]
  - Limb operation [Unknown]
  - Stress [Unknown]
  - Haemangioma of liver [Unknown]
  - Off label use [Unknown]
  - Thrombocytosis [Recovered/Resolved]
  - Coagulopathy [Unknown]
  - Papilloma viral infection [Unknown]
  - Cervix carcinoma stage 0 [Unknown]
  - Fallopian tube operation [Unknown]
  - Hysterectomy [Unknown]
  - Pulmonary embolism [Unknown]
  - Benign tumour excision [Unknown]
  - Gastrooesophageal reflux disease [Unknown]
  - Anxiety [Unknown]
  - Migraine [Unknown]
  - Haemorrhoids [Unknown]
  - Colon adenoma [Unknown]
  - Mammoplasty [Unknown]
  - Pruritus allergic [Unknown]
  - Venous thrombosis [Unknown]
